FAERS Safety Report 19620764 (Version 1)
Quarter: 2021Q3

REPORT INFORMATION
  Report Type: Spontaneous
  Country: US (occurrence: US)
  Receive Date: 20210728
  Receipt Date: 20210728
  Transmission Date: 20211014
  Serious: Yes (Other)
  Sender: FDA-Public Use
  Company Number: US-SA-2021SA248507

PATIENT
  Age: 73 Year
  Sex: Male

DRUGS (2)
  1. ZANTAC [Suspect]
     Active Substance: RANITIDINE HYDROCHLORIDE
     Indication: DYSPEPSIA
     Dosage: UNK UNK, QD
     Dates: start: 198601, end: 200701
  2. STOBACCO [Suspect]
     Active Substance: VARENICLINE TARTRATE

REACTIONS (3)
  - Prostate cancer stage IV [Not Recovered/Not Resolved]
  - Colorectal cancer [Unknown]
  - Skin cancer [Unknown]

NARRATIVE: CASE EVENT DATE: 20100701
